FAERS Safety Report 25715621 (Version 1)
Quarter: 2025Q3

REPORT INFORMATION
  Report Type: Spontaneous
  Country: US (occurrence: None)
  Receive Date: 20250821
  Receipt Date: 20250821
  Transmission Date: 20251021
  Serious: Yes (Hospitalization)
  Sender: FDA-CTU
  Company Number: None

PATIENT
  Sex: Female

DRUGS (3)
  1. RUXIENCE [Suspect]
     Active Substance: RITUXIMAB-PVVR
     Indication: Waldenstrom^s macroglobulinaemia
     Dosage: OTHER FREQUENCY : WEEKLY;?
     Route: 042
     Dates: start: 20250424
  2. RITUXIMAB [Concomitant]
     Active Substance: RITUXIMAB
  3. DEXAMETHASONE (1ML/VL) [Concomitant]

REACTIONS (5)
  - Delirium [None]
  - Mania [None]
  - Back pain [None]
  - Blood pressure fluctuation [None]
  - Oxygen saturation decreased [None]
